FAERS Safety Report 13264019 (Version 1)
Quarter: 2017Q1

REPORT INFORMATION
  Report Type: Spontaneous
  Country: US (occurrence: US)
  Receive Date: 20170223
  Receipt Date: 20170223
  Transmission Date: 20170428
  Serious: No
  Sender: FDA-Public Use
  Company Number: US-MISSION PHARMACAL COMPANY-1063512

PATIENT
  Age: 30 Year
  Sex: Male

DRUGS (1)
  1. THIOLA [Suspect]
     Active Substance: TIOPRONIN
     Indication: AMINO ACID METABOLISM DISORDER
     Route: 065
     Dates: start: 20150613

REACTIONS (4)
  - Nephrolithiasis [None]
  - Pain [Recovered/Resolved]
  - Nausea [Unknown]
  - Drug ineffective [Unknown]
